FAERS Safety Report 25824305 (Version 1)
Quarter: 2025Q3

REPORT INFORMATION
  Report Type: Spontaneous
  Country: PR (occurrence: None)
  Receive Date: 20250918
  Receipt Date: 20250918
  Transmission Date: 20251021
  Serious: Yes (Other)
  Sender: FDA-CTU
  Company Number: None

PATIENT
  Age: 45 Year
  Sex: Female
  Weight: 65.77 kg

DRUGS (9)
  1. CORTROPHIN-ZINC [Suspect]
     Active Substance: CORTICOTROPIN-ZINC HYDROXIDE
     Indication: Multiple sclerosis
     Dosage: OTHER STRENGTH : 80 UNIT/5ML IU;?FREQUENCY : DAILY;?
     Route: 058
  2. Amitriptyline HCl 10MG-- [Concomitant]
  3. Vitamin B12-- [Concomitant]
  4. Vitamin D-- [Concomitant]
  5. Baclofen Oral Tablet 10 MG-- [Concomitant]
  6. Lisinopril Oral Tablets 20MG-- [Concomitant]
  7. Cymbalta Oral Capsule Delayed Relea-- [Concomitant]
  8. Neurontin Oral Capsule 400MG-- [Concomitant]
  9. Tysabri Intravenous Concentrate 300-- [Concomitant]

REACTIONS (4)
  - Hypoaesthesia [None]
  - Hypoaesthesia [None]
  - Fatigue [None]
  - Pain [None]

NARRATIVE: CASE EVENT DATE: 20250918
